FAERS Safety Report 5211287-X (Version None)
Quarter: 2006Q4

REPORT INFORMATION
  Report Type: 
  Country: None (occurrence: None)
  Receive Date: 20061114
  Receipt Date: 20060926
  Transmission Date: 20070319
  Serious: No
  Sender: FDA-Public Use
  Company Number: S06-USA-04028-01

PATIENT
  Age: 77 Year
  Sex: Female

DRUGS (3)
  1. NAMENDA [Suspect]
     Indication: DEMENTIA
  2. NAMENDA [Suspect]
     Indication: DEMENTIA
     Dates: start: 20060101
  3. MANY MEDICATIONS (NOS) [Concomitant]

REACTIONS (3)
  - ANOREXIA [None]
  - ANXIETY [None]
  - COMMUNICATION DISORDER [None]
